FAERS Safety Report 23067310 (Version 1)
Quarter: 2023Q4

REPORT INFORMATION
  Report Type: Spontaneous
  Country: RS (occurrence: RS)
  Receive Date: 20231016
  Receipt Date: 20231016
  Transmission Date: 20240109
  Serious: Yes (Death, Other)
  Sender: FDA-Public Use
  Company Number: RS-JNJFOC-20231021875

PATIENT

DRUGS (8)
  1. IMBRUVICA [Suspect]
     Active Substance: IBRUTINIB
     Indication: Mantle cell lymphoma recurrent
     Route: 048
  2. CISPLATIN\CYTARABINE\DEXAMETHASONE [Suspect]
     Active Substance: CISPLATIN\CYTARABINE\DEXAMETHASONE
     Indication: Mantle cell lymphoma recurrent
     Route: 065
  3. CYCLOPHOSPHAMIDE [Suspect]
     Active Substance: CYCLOPHOSPHAMIDE
     Indication: Mantle cell lymphoma recurrent
     Route: 065
  4. CYCLOPHOSPHAMIDE\PREDNISONE\VINCRISTINE [Suspect]
     Active Substance: CYCLOPHOSPHAMIDE\PREDNISONE\VINCRISTINE
     Indication: Mantle cell lymphoma recurrent
     Route: 065
  5. CYCLOPHOSPHAMIDE\DOXORUBICIN\PREDNISONE\VINCRISTINE [Suspect]
     Active Substance: CYCLOPHOSPHAMIDE\DOXORUBICIN\PREDNISONE\VINCRISTINE
     Indication: Mantle cell lymphoma recurrent
     Route: 065
  6. EPIRUBICIN [Suspect]
     Active Substance: EPIRUBICIN
  7. PREDNISONE [Suspect]
     Active Substance: PREDNISONE
  8. VINCRISTINE [Suspect]
     Active Substance: VINCRISTINE

REACTIONS (2)
  - Death [Fatal]
  - Mantle cell lymphoma recurrent [Fatal]
